FAERS Safety Report 7354113-5 (Version None)
Quarter: 2011Q1

REPORT INFORMATION
  Report Type: 
  Country: None (occurrence: None)
  Receive Date: 20110315
  Receipt Date: 20110307
  Transmission Date: 20110831
  Serious: Yes (Other)
  Sender: FDA-Public Use
  Company Number: US-GENENTECH-314028

PATIENT
  Sex: Female
  Weight: 111.11 kg

DRUGS (3)
  1. XOLAIR [Suspect]
     Indication: HYPERSENSITIVITY
  2. TRACLEER [Concomitant]
     Indication: PULMONARY HYPERTENSION
  3. XOLAIR [Suspect]
     Indication: ASTHMA
     Dosage: 300 MG, Q2W
     Route: 058
     Dates: start: 20070101, end: 20110214

REACTIONS (3)
  - URTICARIA [None]
  - PRURITUS [None]
  - DYSPNOEA [None]
